FAERS Safety Report 24598609 (Version 1)
Quarter: 2024Q4

REPORT INFORMATION
  Report Type: Spontaneous
  Country: US (occurrence: US)
  Receive Date: 20241110
  Receipt Date: 20241110
  Transmission Date: 20250114
  Serious: No
  Sender: SANOFI AVENTIS
  Company Number: US-SA-2024SA312582

PATIENT
  Sex: Male

DRUGS (13)
  1. DUPIXENT [Suspect]
     Active Substance: DUPILUMAB
     Indication: Dermatitis atopic
     Dosage: 300 MG, QOW
     Route: 058
     Dates: start: 20210311
  2. ALLOPURINOL [Concomitant]
     Active Substance: ALLOPURINOL
  3. FINASTERIDE [Concomitant]
     Active Substance: FINASTERIDE
  4. INDOMETHACIN [Concomitant]
     Active Substance: INDOMETHACIN
  5. ONDANSETRON [Concomitant]
     Active Substance: ONDANSETRON
  6. ATORVASTATIN [Concomitant]
     Active Substance: ATORVASTATIN
  7. AMLODIPINE [Concomitant]
     Active Substance: AMLODIPINE BESYLATE
  8. AMLODIPINE [Concomitant]
     Active Substance: AMLODIPINE BESYLATE
  9. ATORVASTATIN [Concomitant]
     Active Substance: ATORVASTATIN
  10. FINASTERIDE [Concomitant]
     Active Substance: FINASTERIDE
  11. OZEMPIC [Concomitant]
     Active Substance: SEMAGLUTIDE
  12. OZEMPIC [Concomitant]
     Active Substance: SEMAGLUTIDE
  13. OLMESARTAN MEDOXOMIL [Concomitant]
     Active Substance: OLMESARTAN MEDOXOMIL
     Dosage: UNK

REACTIONS (2)
  - Psoriasis [Unknown]
  - Dermatitis atopic [Unknown]
